FAERS Safety Report 4412677-5 (Version None)
Quarter: 2004Q2

REPORT INFORMATION
  Report Type: 
  Country: None (occurrence: None)
  Receive Date: 20040630
  Receipt Date: 20040315
  Transmission Date: 20050107
  Serious: No
  Sender: FDA-Public Use
  Company Number: 04P-163-0253609

PATIENT
  Age: 30 Year
  Sex: Female
  Weight: 58.0604 kg

DRUGS (8)
  1. HUMIRA [Suspect]
     Indication: RHEUMATOID ARTHRITIS
     Dosage: 40 MG, 1 IN 1 WK, SUBCUTANEOUS
     Route: 058
     Dates: start: 20040101, end: 20040201
  2. PREDNISONE [Concomitant]
  3. NAPROXEN [Concomitant]
  4. AZATHIOPRINE [Concomitant]
  5. FOLIC ACID [Concomitant]
  6. DARVOCET [Concomitant]
  7. ACETAMINOPHEN W/ CODEINE [Concomitant]
  8. TRAMADOL HYDROCHLORIDE [Concomitant]

REACTIONS (2)
  - INJECTION SITE PAIN [None]
  - VIRAL INFECTION [None]
